FAERS Safety Report 9827748 (Version 1)
Quarter: 2014Q1

REPORT INFORMATION
  Report Type: Spontaneous
  Country: JP (occurrence: JP)
  Receive Date: 20140117
  Receipt Date: 20140117
  Transmission Date: 20141002
  Serious: Yes (Other)
  Sender: FDA-Public Use
  Company Number: JP-TEVA-456675ISR

PATIENT
  Age: 43 Year
  Sex: Male

DRUGS (4)
  1. CISPLATIN [Suspect]
     Indication: OESOPHAGEAL CARCINOMA
  2. DOCETAXEL [Suspect]
  3. ADRIACIN [Suspect]
     Indication: OESOPHAGEAL CARCINOMA
     Dosage: POWDER FOR SOLUTION FOR INJECTION
  4. 5-FU [Suspect]
     Indication: OESOPHAGEAL CARCINOMA

REACTIONS (3)
  - Interstitial lung disease [Unknown]
  - Metastases to bone [Unknown]
  - Disease progression [Unknown]
